FAERS Safety Report 22294223 (Version 1)
Quarter: 2023Q2

REPORT INFORMATION
  Report Type: Spontaneous
  Country: GB (occurrence: GB)
  Receive Date: 20230508
  Receipt Date: 20230508
  Transmission Date: 20230721
  Serious: Yes (Hospitalization)
  Sender: FDA-Public Use
  Company Number: None

PATIENT
  Age: 64 Year
  Sex: Female

DRUGS (30)
  1. SERTRALINE [Suspect]
     Active Substance: SERTRALINE HYDROCHLORIDE
     Indication: Product used for unknown indication
     Dosage: 100 MILLIGRAM, QD (AT NIGHT)
     Route: 065
  2. ATORVASTATIN [Concomitant]
     Active Substance: ATORVASTATIN
     Dosage: 40 MILLIGRAM, QD
     Route: 065
  3. CHLORQUINALDOL [Concomitant]
     Active Substance: CHLORQUINALDOL
     Dosage: UNK
     Route: 065
  4. DIBUCAINE [Concomitant]
     Active Substance: DIBUCAINE
     Dosage: UNK
     Route: 065
  5. CLINDAMYCIN [Concomitant]
     Active Substance: CLINDAMYCIN
     Dosage: UNK
     Route: 065
  6. COAL TAR [Concomitant]
     Active Substance: COAL TAR
     Dosage: UNK
     Route: 065
  7. SALICYLIC ACID [Concomitant]
     Active Substance: SALICYLIC ACID
     Dosage: UNK
     Route: 065
  8. DOCUSATE [Concomitant]
     Active Substance: DOCUSATE
     Dosage: 2 DOSAGE FORM, BID
     Route: 065
  9. DULOXETINE [Concomitant]
     Active Substance: DULOXETINE
     Dosage: 60 MILLIGRAM, QD
     Route: 065
  10. ECONAZOLE [Concomitant]
     Active Substance: ECONAZOLE
     Dosage: UNK
     Route: 065
  11. ESOMEPRAZOLE [Concomitant]
     Active Substance: ESOMEPRAZOLE
     Dosage: 40 MILLIGRAM, BID
     Route: 065
  12. FUROSEMIDE [Concomitant]
     Active Substance: FUROSEMIDE
     Dosage: 40 MILLIGRAM, QD (IN THE MORNING)
     Route: 065
  13. HYDROCORTISONE [Concomitant]
     Active Substance: HYDROCORTISONE
     Dosage: (HYDROCORTISONE 1PERCENT / MICONAZOLE 2 PERCENT CREAM APPLY THINLY TWICE A DAY)
     Route: 065
  14. CLIOQUINOL [Concomitant]
     Active Substance: CLIOQUINOL
     Dosage: UNK
     Route: 065
  15. ICHTHAMMOL [Concomitant]
     Active Substance: ICHTHAMMOL
     Dosage: UNK
     Route: 065
  16. LIDOCAINE [Concomitant]
     Active Substance: LIDOCAINE
     Dosage: UNK (TO BE USED AS DIRECTED)
     Route: 065
  17. LIDOCAINE [Concomitant]
     Active Substance: LIDOCAINE
     Dosage: UNK
     Route: 065
  18. MENTHOL [Concomitant]
     Active Substance: MENTHOL
     Dosage: UNK
     Route: 065
  19. MICONAZOLE [Concomitant]
     Active Substance: MICONAZOLE
     Dosage: (HYDROCORTISONE 1PERCENT / MICONAZOLE 2 PERCENT CREAM APPLY THINLY TWICE A DAY)
     Route: 065
  20. NORTRIPTYLINE [Concomitant]
     Active Substance: NORTRIPTYLINE
     Dosage: 4 DOSAGE FORM, QD (AT NIGHT)
     Route: 065
  21. OXYTETRACYCLINE [Concomitant]
     Active Substance: OXYTETRACYCLINE
     Dosage: UNK
     Route: 065
  22. ACETAMINOPHEN [Concomitant]
     Active Substance: ACETAMINOPHEN
     Dosage: 2 DOSAGE FORM, QID
     Route: 065
  23. PREGABALIN [Concomitant]
     Active Substance: PREGABALIN
     Dosage: 500 MILLIGRAM, QD (100MG MORNING AND LUNCHTIME.400MG AT NIGHT)
     Route: 065
  24. ALBUTEROL [Concomitant]
     Active Substance: ALBUTEROL
     Dosage: UNK (ONE OR TWO PUFFS UP TO FOUR TIMES A DAY 1 X 200 DOSE)
     Route: 055
  25. SULFUR [Concomitant]
     Active Substance: SULFUR
     Dosage: UNK
     Route: 065
  26. SPIRONOLACTONE [Concomitant]
     Active Substance: SPIRONOLACTONE
     Dosage: 100 MILLIGRAM, QD
     Route: 065
  27. UMECLIDINIUM BROMIDE\VILANTEROL TRIFENATATE [Concomitant]
     Active Substance: UMECLIDINIUM BROMIDE\VILANTEROL TRIFENATATE
     Dosage: (55MICROGRAMS/DOSE / 22MICROGRAMS/DOSE DRY POWDER INHALER ONE DOSE EACH DAY)
     Route: 055
  28. OXYCODONE HYDROCHLORIDE [Concomitant]
     Active Substance: OXYCODONE HYDROCHLORIDE
     Dosage: 25 MILLIGRAM, BID (5MG AND 20MG 1 TO BE TAKEN EVERY 12 HOURS )
     Route: 065
  29. FERROUS FUMARATE [Concomitant]
     Active Substance: FERROUS FUMARATE
     Dosage: 210 MILLIGRAM, TID
     Route: 065
  30. FOLIC ACID [Concomitant]
     Active Substance: FOLIC ACID
     Dosage: 5 MILLIGRAM, QD
     Route: 065

REACTIONS (1)
  - Fracture [Recovered/Resolved]
